FAERS Safety Report 7641930-7 (Version None)
Quarter: 2011Q3

REPORT INFORMATION
  Report Type: 
  Country: None (occurrence: None)
  Receive Date: 20110728
  Receipt Date: 20110715
  Transmission Date: 20111222
  Serious: Yes (Hospitalization)
  Sender: FDA-Public Use
  Company Number: US-CELGENEUS-163-21880-11040745

PATIENT
  Sex: Male
  Weight: 118.49 kg

DRUGS (17)
  1. CALCIUM ACETATE [Concomitant]
     Route: 065
  2. REVLIMID [Suspect]
     Dosage: 15 MILLIGRAM
     Route: 048
     Dates: start: 20110301, end: 20110401
  3. SANCTURA [Concomitant]
     Dosage: 60 MILLIGRAM
     Route: 065
  4. LASIX [Concomitant]
     Dosage: 20 MILLIGRAM
     Route: 065
  5. CLONIDINE [Concomitant]
     Dosage: .2 MILLIGRAM
     Route: 062
  6. REVLIMID [Suspect]
     Indication: MULTIPLE MYELOMA
     Dosage: 25 MILLIGRAM
     Route: 048
     Dates: start: 20100714
  7. POTASSIUM [Concomitant]
     Indication: SUPPLEMENTATION THERAPY
     Route: 065
  8. COUMADIN [Concomitant]
     Route: 065
  9. DIGOXIN [Concomitant]
     Dosage: .125 MILLIGRAM
     Route: 065
  10. VITAMIN D [Concomitant]
     Route: 065
  11. REVLIMID [Suspect]
     Dosage: 15 MILLIGRAM
     Route: 048
     Dates: start: 20110506
  12. DECADRON [Concomitant]
     Route: 065
  13. FOSAMAX [Concomitant]
     Dosage: 70 MILLIGRAM
     Route: 065
  14. METOPROLOL TARTRATE [Concomitant]
     Dosage: 100 MILLIGRAM
     Route: 065
  15. FINASTERIDE [Concomitant]
     Dosage: 5 MILLIGRAM
     Route: 065
  16. LIPITOR [Concomitant]
     Dosage: 40 MILLIGRAM
     Route: 065
  17. PROTONIX [Concomitant]
     Dosage: 40 MILLIGRAM
     Route: 065

REACTIONS (3)
  - URTICARIA [None]
  - GASTROINTESTINAL DISORDER [None]
  - RECTAL HAEMORRHAGE [None]
